FAERS Safety Report 19688794 (Version 1)
Quarter: 2021Q3

REPORT INFORMATION
  Report Type: Spontaneous
  Country: US (occurrence: US)
  Receive Date: 20210811
  Receipt Date: 20210811
  Transmission Date: 20211014
  Serious: No
  Sender: FDA-Public Use
  Company Number: US-SA-2021SA262474

PATIENT
  Age: 72 Year
  Sex: Female
  Weight: 47.62 kg

DRUGS (1)
  1. DUPIXENT [Suspect]
     Active Substance: DUPILUMAB
     Indication: DERMATITIS ATOPIC
     Dosage: 300 MG, FREQUENCY: OTHER
     Route: 058

REACTIONS (7)
  - Nausea [Unknown]
  - Headache [Unknown]
  - Rash [Recovered/Resolved]
  - Vertigo [Unknown]
  - Dizziness [Unknown]
  - Hypertension [Unknown]
  - Epistaxis [Unknown]

NARRATIVE: CASE EVENT DATE: 20210704
